FAERS Safety Report 6627900-6 (Version None)
Quarter: 2010Q1

REPORT INFORMATION
  Report Type: 
  Country: None (occurrence: None)
  Receive Date: 20100311
  Receipt Date: 20090305
  Transmission Date: 20100710
  Serious: No
  Sender: FDA-Public Use
  Company Number: A0771949A

PATIENT
  Sex: Female

DRUGS (1)
  1. NICOTINE [Suspect]
     Route: 002

REACTIONS (3)
  - HYPOAESTHESIA ORAL [None]
  - ORAL MUCOSAL ERUPTION [None]
  - TONGUE DISORDER [None]
